FAERS Safety Report 5987604-X (Version None)
Quarter: 2008Q4

REPORT INFORMATION
  Report Type: 
  Country: None (occurrence: None)
  Receive Date: 20081209
  Receipt Date: 20081208
  Transmission Date: 20090506
  Serious: Yes (Hospitalization)
  Sender: FDA-Public Use
  Company Number: US-KINGPHARMUSA00001-K200801382

PATIENT
  Age: 55 Year
  Sex: Female

DRUGS (1)
  1. ALTACE [Suspect]
     Indication: BLOOD PRESSURE
     Dosage: UNK
     Dates: start: 20081001, end: 20081126

REACTIONS (5)
  - CHEST DISCOMFORT [None]
  - COUGH [None]
  - DIZZINESS [None]
  - ELECTROCARDIOGRAM CHANGE [None]
  - HEADACHE [None]
